FAERS Safety Report 18267653 (Version 1)
Quarter: 2020Q3

REPORT INFORMATION
  Report Type: Spontaneous
  Country: US (occurrence: US)
  Receive Date: 20200915
  Receipt Date: 20200915
  Transmission Date: 20201103
  Serious: No
  Sender: FDA-Public Use
  Company Number: US-MYLANLABS-2020M1077065

PATIENT
  Sex: Male
  Weight: 78 kg

DRUGS (1)
  1. BUTORPHANOL TARTRATE NASAL SOLUTION, USP [Suspect]
     Active Substance: BUTORPHANOL TARTRATE
     Indication: PAIN
     Dosage: 2 SPRAYS A DAY
     Route: 045

REACTIONS (2)
  - Drug diversion [Unknown]
  - Drug screen negative [Not Recovered/Not Resolved]
